FAERS Safety Report 24574208 (Version 1)
Quarter: 2024Q4

REPORT INFORMATION
  Report Type: Spontaneous
  Country: US (occurrence: US)
  Receive Date: 20241104
  Receipt Date: 20241104
  Transmission Date: 20250115
  Serious: Yes (Hospitalization)
  Sender: DR REDDYS
  Company Number: None

PATIENT
  Age: 61 Year
  Sex: Male

DRUGS (7)
  1. DOCETAXEL [Suspect]
     Active Substance: DOCETAXEL
     Indication: Glottis carcinoma
     Dosage: 3 DAYS
     Route: 065
  2. DOCETAXEL [Suspect]
     Active Substance: DOCETAXEL
     Indication: Metastases to lung
  3. FLUOROURACIL [Suspect]
     Active Substance: FLUOROURACIL
     Indication: Glottis carcinoma
     Route: 065
  4. FLUOROURACIL [Suspect]
     Active Substance: FLUOROURACIL
     Indication: Metastases to lung
  5. CISPLATIN [Concomitant]
     Active Substance: CISPLATIN
     Indication: Glottis carcinoma
     Route: 065
  6. CISPLATIN [Concomitant]
     Active Substance: CISPLATIN
     Indication: Metastases to lung
  7. FLUOROURACIL [Concomitant]
     Active Substance: FLUOROURACIL
     Indication: Product used for unknown indication

REACTIONS (9)
  - Traumatic lung injury [Recovered/Resolved]
  - Pulmonary toxicity [Recovering/Resolving]
  - Complication associated with device [Recovering/Resolving]
  - Acute kidney injury [Recovering/Resolving]
  - Respiratory alkalosis [Recovering/Resolving]
  - Pneumonia [Recovering/Resolving]
  - Febrile neutropenia [Recovering/Resolving]
  - Bacteraemia [Recovering/Resolving]
  - Cardiac failure [Recovering/Resolving]
